FAERS Safety Report 6492888-8 (Version None)
Quarter: 2009Q4

REPORT INFORMATION
  Report Type: 
  Country: None (occurrence: None)
  Receive Date: 20091214
  Receipt Date: 20091202
  Transmission Date: 20100525
  Serious: Yes (Hospitalization, Other)
  Sender: FDA-Public Use
  Company Number: PHHY2009DE47045

PATIENT
  Sex: Male
  Weight: 96 kg

DRUGS (9)
  1. ZOMETA [Suspect]
     Indication: PROSTATE CANCER METASTATIC
     Dosage: 4 MG EVERY 4 WEEK
     Route: 042
     Dates: start: 20081106
  2. METOPROLOL SUCCINATE [Concomitant]
  3. PRAVASTATIN SODIUM [Concomitant]
     Dosage: 20 MG, UNK
  4. VOLTAREN [Concomitant]
     Dosage: UNK
     Dates: start: 20081101
  5. PANTOZOL [Concomitant]
     Dosage: 40 MG, UNK
  6. JURNISTRA [Concomitant]
     Dosage: 8 MG, UNK
     Dates: start: 20081101
  7. EULEXIN [Concomitant]
     Dosage: UNK
     Dates: start: 20081114
  8. CASODEX [Concomitant]
     Dosage: UNK
     Dates: start: 20081114
  9. RADIOTHERAPY [Concomitant]
     Dosage: 36 GY
     Dates: start: 20090108, end: 20090202

REACTIONS (4)
  - JOINT INSTABILITY [None]
  - MALIGNANT NEOPLASM PROGRESSION [None]
  - METASTASES TO BONE [None]
  - SPINAL FUSION SURGERY [None]
